FAERS Safety Report 4827297-8 (Version None)
Quarter: 2005Q4

REPORT INFORMATION
  Report Type: 
  Country: None (occurrence: None)
  Receive Date: 20051114
  Receipt Date: 20051110
  Transmission Date: 20060501
  Serious: Yes (Other)
  Sender: FDA-Public Use
  Company Number: US-GLAXOSMITHKLINE-A0581770A

PATIENT
  Age: 48 Year
  Sex: Male

DRUGS (1)
  1. GOODY'S EXTRA STRENGTH HEADACHE POWDER [Suspect]
     Indication: HEADACHE
     Route: 048
     Dates: end: 20051001

REACTIONS (5)
  - CAFFEINE CONSUMPTION [None]
  - DEPENDENCE [None]
  - DRUG ABUSER [None]
  - FLUSHING [None]
  - PARAESTHESIA [None]
